FAERS Safety Report 17889302 (Version 1)
Quarter: 2020Q2

REPORT INFORMATION
  Report Type: Spontaneous
  Country: US (occurrence: US)
  Receive Date: 20200612
  Receipt Date: 20200612
  Transmission Date: 20200714
  Serious: No
  Sender: FDA-Public Use
  Company Number: US-HIKMA PHARMACEUTICALS USA INC.-US-H14001-20-00557

PATIENT
  Sex: Female

DRUGS (3)
  1. FLUTICASONE. [Suspect]
     Active Substance: FLUTICASONE
     Indication: NASAL CONGESTION
     Dosage: IN EACH NOSTRIL
     Route: 045
     Dates: start: 20200126
  2. GUAIFENESIN. [Suspect]
     Active Substance: GUAIFENESIN
     Indication: INCREASED UPPER AIRWAY SECRETION
     Dosage: ONE TO TWO TABLETS
     Route: 048
     Dates: start: 20200126, end: 20200130
  3. GUAIFENESIN. [Suspect]
     Active Substance: GUAIFENESIN
     Indication: CHEST DISCOMFORT

REACTIONS (1)
  - Diarrhoea [Unknown]
